FAERS Safety Report 19576609 (Version 1)
Quarter: 2021Q3

REPORT INFORMATION
  Report Type: Report from Study
  Country: US (occurrence: US)
  Receive Date: 20210719
  Receipt Date: 20210719
  Transmission Date: 20211014
  Serious: Yes (Other)
  Sender: FDA-Public Use
  Company Number: US-GLAXOSMITHKLINE-US2021AMR151527

PATIENT
  Sex: Female

DRUGS (6)
  1. DUPIXENT [Suspect]
     Active Substance: DUPILUMAB
     Dosage: 200 MG, Z, QOW
     Route: 058
     Dates: start: 2021, end: 2021
  2. DUPIXENT [Suspect]
     Active Substance: DUPILUMAB
     Indication: ASTHMA
     Dosage: 400 MG
     Route: 058
     Dates: start: 20210429, end: 20210429
  3. LEVAQUIN [Suspect]
     Active Substance: LEVOFLOXACIN
     Indication: EAR INFECTION
     Dosage: UNK
  4. LEVAQUIN [Suspect]
     Active Substance: LEVOFLOXACIN
     Indication: PARANASAL SINUS INFLAMMATION
  5. UREA. [Concomitant]
     Active Substance: UREA
     Indication: PRODUCT USED FOR UNKNOWN INDICATION
     Dosage: UNK
  6. FLUTICASONE FUR+UMECLIDINIUM+VILANTEROL [Suspect]
     Active Substance: FLUTICASONE FUROATE\UMECLIDINIUM BROMIDE\VILANTEROL TRIFENATATE
     Indication: PRODUCT USED FOR UNKNOWN INDICATION
     Dosage: UNK
     Dates: start: 202103

REACTIONS (16)
  - Choking [Unknown]
  - Asthenia [Unknown]
  - Arthralgia [Unknown]
  - Ear discomfort [Unknown]
  - Feeling abnormal [Unknown]
  - Cough [Unknown]
  - Eye pruritus [Unknown]
  - Headache [Unknown]
  - Memory impairment [Unknown]
  - Illness [Unknown]
  - Pain in extremity [Unknown]
  - Palpitations [Unknown]
  - Heart rate increased [Unknown]
  - Disturbance in attention [Unknown]
  - Blood pressure fluctuation [Unknown]
  - Visual impairment [Unknown]

NARRATIVE: CASE EVENT DATE: 2021
